FAERS Safety Report 4755134-9 (Version None)
Quarter: 2005Q3

REPORT INFORMATION
  Report Type: 
  Country: None (occurrence: None)
  Receive Date: 20050829
  Receipt Date: 20050822
  Transmission Date: 20060218
  Serious: Yes (Hospitalization, Other)
  Sender: FDA-Public Use
  Company Number: 200512818FR

PATIENT
  Age: 80 Year
  Sex: Female
  Weight: 60 kg

DRUGS (12)
  1. ARAVA [Suspect]
     Indication: RHEUMATOID ARTHRITIS
     Route: 048
     Dates: start: 20010918
  2. ZOCOR [Suspect]
     Route: 048
     Dates: start: 20010615
  3. ACTONEL [Suspect]
     Route: 048
     Dates: start: 20010615
  4. HUMIRA [Concomitant]
     Indication: RHEUMATOID ARTHRITIS
     Route: 058
     Dates: start: 20030525
  5. CORTANCYL [Concomitant]
     Indication: RHEUMATOID ARTHRITIS
     Route: 048
  6. MOBIC [Concomitant]
     Indication: RHEUMATOID ARTHRITIS
  7. OMEPRAZOLE [Concomitant]
     Route: 048
  8. CALCIUM WITH VITAMIN D [Concomitant]
     Route: 048
  9. SECTRAL [Concomitant]
     Dates: start: 20010101
  10. LASILIX [Concomitant]
     Dates: start: 20010101
  11. KARDEGIC [Concomitant]
     Route: 048
     Dates: start: 20010101
  12. APROVEL [Concomitant]
     Route: 048
     Dates: start: 20050311

REACTIONS (3)
  - ACANTHOMA [None]
  - NEUROPATHY PERIPHERAL [None]
  - SQUAMOUS CELL CARCINOMA [None]
